FAERS Safety Report 16499582 (Version 1)
Quarter: 2019Q3

REPORT INFORMATION
  Report Type: Spontaneous
  Country: US (occurrence: US)
  Receive Date: 20190701
  Receipt Date: 20190701
  Transmission Date: 20191004
  Serious: Yes (Death, Hospitalization, Other)
  Sender: FDA-Public Use
  Company Number: US-ASTELLAS-2019US026294

PATIENT
  Age: 67 Year
  Sex: Female

DRUGS (2)
  1. TACROLIMUS. [Suspect]
     Active Substance: TACROLIMUS
     Indication: LIVER TRANSPLANT
     Dosage: UNK, UNKNOWN FREQ.
     Route: 065
  2. PREDNISONE. [Suspect]
     Active Substance: PREDNISONE
     Indication: LIVER TRANSPLANT
     Dosage: UNK UNK, UNKNOWN FREQ.
     Route: 065

REACTIONS (10)
  - Hypotension [Unknown]
  - Acute kidney injury [Unknown]
  - Clostridial infection [Fatal]
  - Multiple organ dysfunction syndrome [Fatal]
  - Liver abscess [Unknown]
  - Metabolic acidosis [Unknown]
  - Septic shock [Fatal]
  - Cholangitis [Unknown]
  - Respiratory distress [Unknown]
  - Escherichia infection [Fatal]
